FAERS Safety Report 4579620-X (Version None)
Quarter: 2005Q1

REPORT INFORMATION
  Report Type: 
  Country: None (occurrence: None)
  Receive Date: 20050210
  Receipt Date: 20050210
  Transmission Date: 20050727
  Serious: Yes (Hospitalization)
  Sender: FDA-Public Use
  Company Number: None

PATIENT
  Age: 25 Year
  Sex: Male
  Weight: 90 kg

DRUGS (20)
  1. HALOPERIDOL [Suspect]
     Indication: AGITATION
     Dosage: 100MG (20ML) IV CONT INFUSED 5MG IV Q 1 H PRN, 1 MG IV Q 1 H PRN
     Route: 042
     Dates: start: 20040710, end: 20040727
  2. RISPERIDONE [Suspect]
     Indication: AGITATION
     Dosage: 0.5MG PO BID 3 D 5 MG PO BID X 5 D
     Route: 048
     Dates: start: 20040706, end: 20040726
  3. RISPERIDONE [Suspect]
     Dosage: 1MG PO BID X1 D
     Route: 048
  4. LINEZOLID [Concomitant]
  5. LEVOFLOXACIN [Concomitant]
  6. CEFEPIME [Concomitant]
  7. AZITHROMYCIN [Concomitant]
  8. METRONIDAZOLE [Concomitant]
  9. BACITRACIN ZINC OINTMENT [Concomitant]
  10. METOCLOPRAMIDE [Concomitant]
  11. SULCRAFATE [Concomitant]
  12. DALTEPARIN [Concomitant]
  13. DOCUSATE SODIUM [Concomitant]
  14. FERROUS SULFATE TAB [Concomitant]
  15. MAGNESIUM HYDROXIDE TAB [Concomitant]
  16. FENTANYL [Concomitant]
  17. PROMETHAZINE HCL [Concomitant]
  18. BISACODYL [Concomitant]
  19. BUSPIRONE [Concomitant]
  20. TPN [Concomitant]

REACTIONS (8)
  - AGITATION [None]
  - COGWHEEL RIGIDITY [None]
  - COMA [None]
  - HYPERTHERMIA [None]
  - LOCKED-IN SYNDROME [None]
  - MENTAL STATUS CHANGES [None]
  - NEUROLEPTIC MALIGNANT SYNDROME [None]
  - SOMNOLENCE [None]
